FAERS Safety Report 4833166-X (Version None)
Quarter: 2005Q4

REPORT INFORMATION
  Report Type: 
  Country: None (occurrence: None)
  Receive Date: 20051117
  Receipt Date: 20051104
  Transmission Date: 20060501
  Serious: Yes (Other)
  Sender: FDA-Public Use
  Company Number: 2005068635

PATIENT
  Age: 67 Year
  Sex: Female
  Weight: 81.6475 kg

DRUGS (9)
  1. NEURONTIN [Suspect]
     Indication: PAIN
     Dosage: 1200 MG (200 MG, 2 IN 1 D), ORAL
     Route: 048
     Dates: start: 20040601
  2. ANTIHYPERTENSIVES (ANTIHYPERTENSIVES) [Concomitant]
  3. ULTRACET [Concomitant]
  4. DYNACIRC [Concomitant]
  5. TORSEMIDE (TORASEMIDE) [Concomitant]
  6. RANITIDINE HCL [Concomitant]
  7. MOBIC [Concomitant]
  8. DEMADEX [Concomitant]
  9. TEVETEN [Concomitant]

REACTIONS (6)
  - ALOPECIA [None]
  - BALANCE DISORDER [None]
  - BEREAVEMENT REACTION [None]
  - DIFFICULTY IN WALKING [None]
  - DISTURBANCE IN ATTENTION [None]
  - NOCTIPHOBIA [None]
